FAERS Safety Report 5191446-5 (Version None)
Quarter: 2006Q4

REPORT INFORMATION
  Report Type: 
  Country: None (occurrence: None)
  Receive Date: 20061226
  Receipt Date: 20061218
  Transmission Date: 20070319
  Serious: Yes (Hospitalization)
  Sender: FDA-Public Use
  Company Number: US-MERCK-0612USA02964

PATIENT
  Age: 64 Year
  Sex: Male

DRUGS (2)
  1. COZAAR [Suspect]
     Indication: HYPERTENSION
     Route: 048
     Dates: start: 20061001
  2. PRINIVIL [Suspect]
     Route: 065

REACTIONS (3)
  - COUGH [None]
  - HEART RATE INCREASED [None]
  - PAIN IN JAW [None]
